FAERS Safety Report 7065379-3 (Version None)
Quarter: 2010Q4

REPORT INFORMATION
  Report Type: 
  Country: None (occurrence: None)
  Receive Date: 20101019
  Receipt Date: 20101001
  Transmission Date: 20110411
  Serious: Yes (Hospitalization)
  Sender: FDA-Public Use
  Company Number: IPC201010-000271

PATIENT
  Age: 65 Year
  Sex: Female

DRUGS (10)
  1. ATENOLOL [Suspect]
     Dosage: 25 MG DAILY
  2. FUROSEMIDE [Suspect]
     Dosage: 20 MG DAILY
  3. RIVASTIGMINE [Suspect]
     Dosage: 3 MG TWICE DAILY
  4. LEVETIRACETAM [Suspect]
     Dosage: 500 MG TWICE DAILY
  5. FOSINOPRIL SODIUM [Suspect]
     Dosage: 20 MG TWICE DAILY
  6. AMLODIPINE [Suspect]
     Dosage: 5 MG DAILY
  7. MINOXIDIL [Suspect]
     Dosage: 5 MG TWICE DAILY
  8. ASPIRIN [Suspect]
     Dosage: 325 MG DAILY
  9. CLOPIDOGREL [Suspect]
     Dosage: 75 MG DAILY
  10. ESCITALOPRAM [Suspect]
     Dosage: 5 MG DAILY

REACTIONS (7)
  - BRADYCARDIA [None]
  - DIZZINESS [None]
  - DRUG INTERACTION [None]
  - DYSPNOEA [None]
  - ORTHOSTATIC HYPOTENSION [None]
  - SINUS ARREST [None]
  - SYNCOPE [None]
